FAERS Safety Report 8074322-X (Version None)
Quarter: 2011Q4

REPORT INFORMATION
  Report Type: 
  Country: None (occurrence: None)
  Receive Date: 20111221
  Receipt Date: 20110523
  Transmission Date: 20120403
  Serious: Yes (Death)
  Sender: FDA-Public Use
  Company Number: PHBS2008US06791

PATIENT
  Sex: Male
  Weight: 64.4 kg

DRUGS (1)
  1. EXJADE [Suspect]
     Indication: ACUTE MYELOID LEUKAEMIA
     Dosage: 500 MG

REACTIONS (2)
  - NEOPLASM MALIGNANT [None]
  - COUGH [None]
